FAERS Safety Report 6864650-5 (Version None)
Quarter: 2010Q3

REPORT INFORMATION
  Report Type: 
  Country: None (occurrence: None)
  Receive Date: 20100721
  Receipt Date: 20080531
  Transmission Date: 20110219
  Serious: Yes (Other)
  Sender: FDA-Public Use
  Company Number: US-PFIZER INC-2008027224

PATIENT
  Sex: Female
  Weight: 88.9 kg

DRUGS (8)
  1. CHANTIX [Suspect]
     Indication: SMOKING CESSATION THERAPY
     Route: 048
     Dates: start: 20080316, end: 20080319
  2. CHANTIX [Suspect]
     Indication: TOBACCO USER
  3. ACETYLSALICYLIC ACID [Concomitant]
     Route: 048
  4. PROVIGIL [Concomitant]
     Route: 048
  5. MENTAX [Concomitant]
     Indication: VITAMIN B COMPLEX DEFICIENCY
     Route: 048
  6. LEXAPRO [Concomitant]
     Indication: TRAUMATIC BRAIN INJURY
     Route: 048
  7. PREVACID [Concomitant]
  8. VITAMIN D [Concomitant]
     Indication: VITAMIN D DEFICIENCY
     Route: 048

REACTIONS (6)
  - ERYTHEMA [None]
  - HYPERSENSITIVITY [None]
  - PRURITUS [None]
  - SKIN DISORDER [None]
  - SKIN HAEMORRHAGE [None]
  - URTICARIA [None]
